FAERS Safety Report 5787520-2 (Version None)
Quarter: 2008Q2

REPORT INFORMATION
  Report Type: 
  Country: None (occurrence: None)
  Receive Date: 20080625
  Receipt Date: 20071024
  Transmission Date: 20081010
  Serious: No
  Sender: FDA-Public Use
  Company Number: US-ASTRAZENECA-2007UW24723

PATIENT
  Age: 5 Year
  Sex: Male

DRUGS (1)
  1. PULMICORT RESPULES [Suspect]
     Dosage: 0.5 MG/DL
     Route: 055

REACTIONS (1)
  - HEART RATE INCREASED [None]
